FAERS Safety Report 4502137-5 (Version None)
Quarter: 2004Q4

REPORT INFORMATION
  Report Type: 
  Country: None (occurrence: None)
  Receive Date: 20041109
  Receipt Date: 20041021
  Transmission Date: 20050328
  Serious: Yes (Death, Hospitalization)
  Sender: FDA-Public Use
  Company Number: EWC041041115

PATIENT
  Age: 55 Year
  Sex: Male
  Weight: 48 kg

DRUGS (3)
  1. GEMCITABINE HYDROCHLORIDE-IV (GEMCITABINE) [Suspect]
     Indication: NON-SMALL CELL LUNG CANCER
     Dosage: 1200 MG/1 OTHER
     Route: 050
     Dates: start: 20040507, end: 20040615
  2. GRANISETRON [Concomitant]
  3. DEXAMETHASONE [Concomitant]

REACTIONS (7)
  - BLOOD PRESSURE DECREASED [None]
  - CONFUSIONAL STATE [None]
  - MALIGNANT NEOPLASM PROGRESSION [None]
  - METASTASES TO CENTRAL NERVOUS SYSTEM [None]
  - NON-SMALL CELL LUNG CANCER [None]
  - PLATELET COUNT DECREASED [None]
  - RESPIRATORY FAILURE [None]
